FAERS Safety Report 7648381-X (Version None)
Quarter: 2011Q3

REPORT INFORMATION
  Report Type: 
  Country: None (occurrence: None)
  Receive Date: 20110801
  Receipt Date: 20110722
  Transmission Date: 20111222
  Serious: Yes (Other)
  Sender: FDA-Public Use
  Company Number: DE-TEVA-293852GER

PATIENT

DRUGS (2)
  1. COPAXONE [Suspect]
     Dosage: 20 MILLIGRAM;
     Route: 058
  2. COPAXONE [Suspect]
     Indication: MULTIPLE SCLEROSIS
     Route: 065

REACTIONS (1)
  - FOETAL MALFORMATION [None]
